FAERS Safety Report 15775594 (Version 2)
Quarter: 2019Q1

REPORT INFORMATION
  Report Type: Spontaneous
  Country: NL (occurrence: NL)
  Receive Date: 20181231
  Receipt Date: 20190102
  Transmission Date: 20190417
  Serious: Yes (Death, Hospitalization)
  Sender: FDA-Public Use
  Company Number: NL-TEVA-2018-NL-993022

PATIENT
  Age: 74 Year
  Sex: Female
  Weight: 70 kg

DRUGS (9)
  1. PRAVASTATINENATRIUM. 40 MG. [Concomitant]
     Indication: HYPERCHOLESTEROLAEMIA
     Route: 065
  2. QVAR - EXTRAFIJNE -AEROSOL 100 - INHALATOR. [Concomitant]
     Indication: ASTHMA-CHRONIC OBSTRUCTIVE PULMONARY DISEASE OVERLAP SYNDROME
  3. AMLODIPINE ACCORD. 5 MG. [Concomitant]
     Indication: HYPERTENSION
     Dosage: 5 MILLIGRAM DAILY; DAAGE 1 TABLET.
  4. DESLORATADINE. [Concomitant]
     Active Substance: DESLORATADINE
     Indication: HYPERSENSITIVITY
     Dosage: 5 MILLIGRAM DAILY; 1 TIMES DAILY 5 MG.
     Route: 065
  5. BACLOFEN TABLET, 10 MG (MILLIGRAM) [Suspect]
     Active Substance: BACLOFEN
     Indication: TRIGEMINAL NEURALGIA
     Dosage: 75 MILLIGRAM DAILY; 3 TIMES DAILY 25 MG
     Dates: start: 2016
  6. BETAHISTINE BETASERC [Concomitant]
     Indication: MENIERE^S DISEASE
     Dosage: 32 MILLIGRAM DAILY; 2 TIMES DAILY 16 MG
  7. GREPID ; 75 MG [Concomitant]
     Indication: PRODUCT USED FOR UNKNOWN INDICATION
     Route: 065
  8. SPIRIVA - RESPIMAT. [Concomitant]
     Indication: ASTHMA-CHRONIC OBSTRUCTIVE PULMONARY DISEASE OVERLAP SYNDROME
     Route: 065
  9. MAGNESIUM  (KRAMPEN) [Concomitant]
     Indication: MUSCLE SPASMS
     Route: 065

REACTIONS (2)
  - Muscular weakness [Unknown]
  - Intestinal ischaemia [Fatal]

NARRATIVE: CASE EVENT DATE: 20170120
